FAERS Safety Report 8353557-2 (Version None)
Quarter: 2012Q2

REPORT INFORMATION
  Report Type: 
  Country: None (occurrence: None)
  Receive Date: 20120511
  Receipt Date: 20110531
  Transmission Date: 20120825
  Serious: No
  Sender: FDA-Public Use
  Company Number: US-GLAXOSMITHKLINE-A0930468A

PATIENT
  Age: 52 Year
  Sex: Female
  Weight: 72.7 kg

DRUGS (11)
  1. ASPIRIN [Concomitant]
  2. TYKERB [Suspect]
     Dosage: 1250MG PER DAY
     Route: 048
  3. CRESTOR [Concomitant]
  4. METFORMIN HCL [Concomitant]
  5. FEMARA [Concomitant]
  6. CALCIUM CARBONATE [Concomitant]
  7. VICODIN [Concomitant]
  8. PROCHLORPERAZINE TAB [Concomitant]
  9. OMEPRAZOLE [Concomitant]
  10. OXYCODONE HCL [Concomitant]
  11. VITAMIN B COMPLEX CAP [Concomitant]

REACTIONS (5)
  - RASH [None]
  - ABDOMINAL DISTENSION [None]
  - GASTROOESOPHAGEAL REFLUX DISEASE [None]
  - HYPERAESTHESIA [None]
  - DRY SKIN [None]
